FAERS Safety Report 22334657 (Version 1)
Quarter: 2023Q2

REPORT INFORMATION
  Report Type: Spontaneous
  Country: US (occurrence: None)
  Receive Date: 20230517
  Receipt Date: 20230517
  Transmission Date: 20230721
  Serious: No
  Sender: FDA-Public Use
  Company Number: US-ROCHE-3122869

PATIENT
  Sex: Female
  Weight: 61.29 kg

DRUGS (2)
  1. ACTEMRA [Suspect]
     Active Substance: TOCILIZUMAB
     Indication: Rheumatoid arthritis
     Route: 058
     Dates: start: 202111
  2. CORTICOSTEROID CREAM (UNK INGREDIENTS) [Concomitant]

REACTIONS (2)
  - Rash [Not Recovered/Not Resolved]
  - Petechiae [Unknown]
